FAERS Safety Report 19654454 (Version 1)
Quarter: 2021Q3

REPORT INFORMATION
  Report Type: Report from Study
  Country: GB (occurrence: GB)
  Receive Date: 20210803
  Receipt Date: 20210803
  Transmission Date: 20211014
  Serious: Yes (Other)
  Sender: FDA-Public Use
  Company Number: NVSC2021GB050812

PATIENT
  Sex: Female

DRUGS (2)
  1. COSENTYX [Suspect]
     Active Substance: SECUKINUMAB
     Dosage: 300 MG, QW (WEEKS 0, 1, 2 AND 3)
     Route: 058
     Dates: start: 202102, end: 20210511
  2. COSENTYX [Suspect]
     Active Substance: SECUKINUMAB
     Indication: PSORIATIC ARTHROPATHY
     Dosage: 300 MG, QMO (MONTHLY FROM WEEK 4 AS DIRECTED)
     Route: 058
     Dates: start: 202004

REACTIONS (4)
  - Hypersensitivity [Unknown]
  - Immunodeficiency [Unknown]
  - Lower respiratory tract infection [Unknown]
  - Confusional state [Unknown]
